FAERS Safety Report 8320294-X (Version None)
Quarter: 2012Q2

REPORT INFORMATION
  Report Type: 
  Country: None (occurrence: None)
  Receive Date: 20120426
  Receipt Date: 20120426
  Transmission Date: 20120825
  Serious: Yes (Other)
  Sender: FDA-Public Use
  Company Number: None

PATIENT
  Age: 80 Year
  Sex: Female
  Weight: 50.8029 kg

DRUGS (4)
  1. VAGIFEM [Suspect]
     Indication: BLOOD OESTROGEN DECREASED
     Dosage: 1 TABLET 3 TIMES WEEKLY
     Dates: start: 20110622, end: 20110727
  2. VAGIFEM [Suspect]
     Indication: URINARY TRACT INFECTION
     Dosage: 1 TABLET 3 TIMES WEEKLY
     Dates: start: 20110622, end: 20110727
  3. VAGIFEM [Suspect]
     Indication: BLOOD OESTROGEN DECREASED
     Dosage: 1 TABLET 3 TIMES WEEKLY
     Dates: start: 20110824, end: 20110831
  4. VAGIFEM [Suspect]
     Indication: URINARY TRACT INFECTION
     Dosage: 1 TABLET 3 TIMES WEEKLY
     Dates: start: 20110824, end: 20110831

REACTIONS (3)
  - APPLICATION SITE PAIN [None]
  - DYSURIA [None]
  - BLOOD URINE PRESENT [None]
